FAERS Safety Report 14506931 (Version 6)
Quarter: 2019Q1

REPORT INFORMATION
  Report Type: Report from Study
  Country: US (occurrence: US)
  Receive Date: 20180208
  Receipt Date: 20190202
  Transmission Date: 20190417
  Serious: Yes (Other)
  Sender: FDA-Public Use
  Company Number: PHEH2018US004361

PATIENT
  Sex: Female

DRUGS (1)
  1. GILENYA [Suspect]
     Active Substance: FINGOLIMOD HYDROCHLORIDE
     Indication: MULTIPLE SCLEROSIS
     Dosage: 0.5 MG, QD
     Route: 048
     Dates: start: 20170421

REACTIONS (14)
  - Leukopenia [Unknown]
  - Asthenia [Unknown]
  - Neutrophil count decreased [Unknown]
  - Fatigue [Unknown]
  - Lymphadenopathy [Unknown]
  - Red blood cell count decreased [Recovered/Resolved]
  - Amnesia [Unknown]
  - Decreased appetite [Unknown]
  - Cataract [Unknown]
  - Dyspnoea [Unknown]
  - Lymphocyte count decreased [Recovering/Resolving]
  - Central nervous system lesion [Unknown]
  - Confusional state [Unknown]
  - Platelet disorder [Unknown]
